FAERS Safety Report 8007573-0 (Version None)
Quarter: 2011Q4

REPORT INFORMATION
  Report Type: 
  Country: None (occurrence: None)
  Receive Date: 20111227
  Receipt Date: 20111216
  Transmission Date: 20120403
  Serious: Yes (Hospitalization)
  Sender: FDA-Public Use
  Company Number: US-BAYER-2011-053256

PATIENT
  Age: 20 Year
  Sex: Female
  Weight: 57 kg

DRUGS (6)
  1. CIPROFLOXACIN [Concomitant]
  2. FLAGYL [Concomitant]
  3. DROSPIRENONE AND ETHINYL ESTRADIOL [Suspect]
     Indication: PREMENSTRUAL SYNDROME
  4. YASMIN [Suspect]
     Indication: PREMENSTRUAL SYNDROME
  5. DROSPIRENONE AND ETHINYL ESTRADIOL [Suspect]
     Indication: CONTRACEPTION
     Dosage: UNK
     Route: 048
     Dates: start: 20090125, end: 20090601
  6. YASMIN [Suspect]
     Indication: CONTRACEPTION
     Dosage: UNK
     Route: 048
     Dates: start: 20060713, end: 20090101

REACTIONS (9)
  - DEEP VEIN THROMBOSIS [None]
  - DYSPNOEA [None]
  - DIARRHOEA [None]
  - BACK PAIN [None]
  - INJURY [None]
  - PARAESTHESIA [None]
  - PAIN IN EXTREMITY [None]
  - OEDEMA [None]
  - GASTROENTERITIS [None]
